FAERS Safety Report 22216349 (Version 1)
Quarter: 2023Q2

REPORT INFORMATION
  Report Type: Report from Study
  Country: US (occurrence: US)
  Receive Date: 20230417
  Receipt Date: 20230417
  Transmission Date: 20230722
  Serious: No
  Sender: FDA-Public Use
  Company Number: US-IGSA-BIG0023000

PATIENT
  Age: 43 Year
  Sex: Male
  Weight: 86.168 kg

DRUGS (1)
  1. GAMUNEX-C [Suspect]
     Active Substance: HUMAN IMMUNOGLOBULIN G
     Indication: Chronic inflammatory demyelinating polyradiculoneuropathy
     Dosage: 950 GRAM, Q.4M.
     Route: 042
     Dates: start: 201310

REACTIONS (3)
  - Urticaria [Recovered/Resolved]
  - Dyspepsia [Recovered/Resolved]
  - Chest pain [Recovered/Resolved]

NARRATIVE: CASE EVENT DATE: 20131001
